FAERS Safety Report 18404262 (Version 1)
Quarter: 2020Q4

REPORT INFORMATION
  Report Type: Spontaneous
  Country: US (occurrence: US)
  Receive Date: 20201020
  Receipt Date: 20201020
  Transmission Date: 20210114
  Serious: No
  Sender: FDA-Public Use
  Company Number: US-GW PHARMA-202010USGW03556

PATIENT

DRUGS (2)
  1. EPIDIOLEX [Suspect]
     Active Substance: CANNABIDIOL
     Dosage: 30 MILLIGRAM, BID
     Route: 048
     Dates: start: 2020
  2. EPIDIOLEX [Suspect]
     Active Substance: CANNABIDIOL
     Indication: LENNOX-GASTAUT SYNDROME
     Dosage: 80 MILLIGRAM, BID
     Route: 048
     Dates: start: 202006, end: 2020

REACTIONS (3)
  - Abnormal behaviour [Unknown]
  - Screaming [Unknown]
  - Inappropriate affect [Unknown]

NARRATIVE: CASE EVENT DATE: 202006
